FAERS Safety Report 4769774-4 (Version None)
Quarter: 2005Q3

REPORT INFORMATION
  Report Type: 
  Country: None (occurrence: None)
  Receive Date: 20050915
  Receipt Date: 20050808
  Transmission Date: 20060218
  Serious: Yes (Death, Hospitalization, Other)
  Sender: FDA-Public Use
  Company Number: US-BRISTOL-MYERS SQUIBB COMPANY-13066600

PATIENT
  Age: 74 Year
  Sex: Female
  Weight: 68 kg

DRUGS (7)
  1. BLEOMYCIN [Suspect]
     Indication: HODGKIN'S DISEASE
     Dosage: DOSE UNIT = UNITS
     Route: 042
     Dates: start: 20040212, end: 20040311
  2. VINBLASTINE [Concomitant]
     Indication: HODGKIN'S DISEASE
  3. DOXORUBICIN [Concomitant]
     Indication: HODGKIN'S DISEASE
  4. DACARBAZINE [Concomitant]
     Indication: HODGKIN'S DISEASE
  5. ADRIAMYCIN PFS [Concomitant]
     Indication: HODGKIN'S DISEASE
  6. PREDNISONE [Concomitant]
  7. PRAVACHOL [Concomitant]

REACTIONS (4)
  - COUGH [None]
  - DYSPNOEA [None]
  - PNEUMOCYSTIS JIROVECI PNEUMONIA [None]
  - PULMONARY FIBROSIS [None]
